FAERS Safety Report 19201600 (Version 1)
Quarter: 2021Q2

REPORT INFORMATION
  Report Type: Spontaneous
  Country: US (occurrence: US)
  Receive Date: 20210430
  Receipt Date: 20210430
  Transmission Date: 20210717
  Serious: Yes (Hospitalization, Other)
  Sender: FDA-Public Use
  Company Number: US-APOTEX-2021AP010750

PATIENT
  Age: 14 Year
  Sex: Female

DRUGS (1)
  1. ENOXAPARIN [Suspect]
     Active Substance: ENOXAPARIN
     Indication: THROMBOSIS PROPHYLAXIS
     Dosage: 30 MILLIGRAM (0.5 MG/KG), Q.12H
     Route: 065

REACTIONS (1)
  - Cerebral haemorrhage [Recovered/Resolved]
